FAERS Safety Report 18830280 (Version 1)
Quarter: 2021Q1

REPORT INFORMATION
  Report Type: Spontaneous
  Country: US (occurrence: US)
  Receive Date: 20210202
  Receipt Date: 20210202
  Transmission Date: 20210419
  Serious: Yes (Hospitalization)
  Sender: FDA-Public Use
  Company Number: None

PATIENT
  Age: 60 Year
  Sex: Male
  Weight: 94 kg

DRUGS (15)
  1. CEFTRIAXONE 1 GM IV Q24H [Concomitant]
     Dates: start: 20210131
  2. LEVOTHYROXINE 200 MCG PO QAM [Concomitant]
  3. MYCOPHENOLATE MOFETIL 750 MG PO BID [Concomitant]
  4. ASPIRIN 81 MG DAILY [Concomitant]
     Active Substance: ASPIRIN
  5. CHOLECALCIFEROL 1,000 IU PO DAILY WITH FOOD [Concomitant]
  6. FLUCONAZOLE 100 MG PO MWF [Concomitant]
  7. REMDESIVIR IV Q24H X 5 DAYS [Concomitant]
     Dates: start: 20210201
  8. BELATACEPT IV QMONTH [Concomitant]
  9. TAMSULOSIN 0.4 MG PO DAILY [Concomitant]
  10. METOPROLOL TARTRATE 25 MG PO DAILY [Concomitant]
  11. METHYLPREDNISOLONE 40 MG IV Q12H [Concomitant]
     Dates: start: 20210131
  12. BAMLANIVIMAB. [Suspect]
     Active Substance: BAMLANIVIMAB
     Indication: COVID-19
     Dosage: ?          OTHER FREQUENCY:ONE TIME;?
     Route: 042
     Dates: start: 20210127
  13. HEPARIN 5,000 UNITS Q12H [Concomitant]
     Dates: start: 20210131
  14. OMEGA?3 FATTY ACIDS 1 GRAM PO DAILY [Concomitant]
  15. AZITHROMYCIN 500 MG IV Q24H [Concomitant]
     Dates: start: 20210131

REACTIONS (4)
  - Nausea [None]
  - Pneumonia [None]
  - Pyrexia [None]
  - Hypoxia [None]

NARRATIVE: CASE EVENT DATE: 20210131
